FAERS Safety Report 9504825 (Version 2)
Quarter: 2013Q3

REPORT INFORMATION
  Report Type: Report from Study
  Country: IN (occurrence: IN)
  Receive Date: 20130906
  Receipt Date: 20130906
  Transmission Date: 20140515
  Serious: Yes (Other)
  Sender: FDA-Public Use
  Company Number: PHHO2012IN002552

PATIENT
  Age: 71 Year
  Sex: Female
  Weight: 56.6 kg

DRUGS (6)
  1. ALISKIREN [Suspect]
     Indication: CARDIOVASCULAR DISORDER
     Dosage: UNK
     Dates: start: 20111209, end: 20120110
  2. ESIDREX [Suspect]
     Indication: CARDIOVASCULAR DISORDER
     Dosage: UNK
     Route: 048
     Dates: start: 20111209, end: 20120110
  3. LOSARTAN [Suspect]
     Dosage: 50 MG, UNK
     Dates: start: 20111003, end: 20120110
  4. NO TREATMENT RECEIVED [Suspect]
     Indication: CARDIOVASCULAR DISORDER
     Dosage: ACTIVE RUN-IN PHASE
  5. AMLOKIND-AT [Concomitant]
  6. THIAZOLIDINEDIONES [Concomitant]

REACTIONS (1)
  - Hyperkalaemia [Recovering/Resolving]
